FAERS Safety Report 5253591-5 (Version None)
Quarter: 2007Q1

REPORT INFORMATION
  Report Type: 
  Country: None (occurrence: None)
  Receive Date: 20070301
  Receipt Date: 20070219
  Transmission Date: 20070707
  Serious: Yes (Death)
  Sender: FDA-Public Use
  Company Number: IN-PFIZER INC-2007002766

PATIENT
  Age: 57 Year
  Sex: Male
  Weight: 57 kg

DRUGS (13)
  1. VFEND [Suspect]
     Indication: FUNGAL INFECTION
     Route: 048
  2. TARGOCID [Concomitant]
  3. LEVOSALBUTAMOL HYDROCHLORIDE [Concomitant]
  4. BUDICORT [Concomitant]
  5. IPRAVENT [Concomitant]
  6. ACYCLOVIR [Concomitant]
  7. LASIX [Concomitant]
  8. NEUPOGEN [Concomitant]
  9. HYDROCORTISONE [Concomitant]
  10. DOPAMINE HCL [Concomitant]
  11. MEROPENEM [Concomitant]
  12. PANTOPRAZOLE SODIUM [Concomitant]
  13. ALL OTHER THERAPEUTIC PRODUCTS [Concomitant]

REACTIONS (1)
  - CARDIOPULMONARY FAILURE [None]
